FAERS Safety Report 20735525 (Version 1)
Quarter: 2022Q2

REPORT INFORMATION
  Report Type: Other
  Country: RO (occurrence: RO)
  Receive Date: 20220421
  Receipt Date: 20220421
  Transmission Date: 20220721
  Serious: Yes (Other)
  Sender: FDA-Public Use
  Company Number: RO-ROCHE-3065797

PATIENT
  Age: 26 Year
  Sex: Female
  Weight: 74 kg

DRUGS (11)
  1. TRASTUZUMAB [Suspect]
     Active Substance: TRASTUZUMAB
     Indication: HER2 positive breast cancer
     Route: 058
     Dates: start: 201904
  2. TRASTUZUMAB [Suspect]
     Active Substance: TRASTUZUMAB
     Indication: Metastases to liver
  3. PERTUZUMAB [Suspect]
     Active Substance: PERTUZUMAB
     Indication: HER2 positive breast cancer
     Dosage: LOADING DOSE ON CYCLE 1
     Route: 042
     Dates: start: 201904
  4. PERTUZUMAB [Suspect]
     Active Substance: PERTUZUMAB
     Indication: Metastases to liver
     Route: 042
  5. DOCETAXEL [Suspect]
     Active Substance: DOCETAXEL
     Indication: HER2 positive breast cancer
     Route: 065
     Dates: start: 201904
  6. PACLITAXEL [Suspect]
     Active Substance: PACLITAXEL
     Indication: Metastases to liver
     Route: 065
  7. PACLITAXEL [Suspect]
     Active Substance: PACLITAXEL
     Route: 065
  8. PACLITAXEL [Suspect]
     Active Substance: PACLITAXEL
     Route: 065
  9. PACLITAXEL [Suspect]
     Active Substance: PACLITAXEL
     Route: 065
  10. ANASTROZOLE [Concomitant]
     Active Substance: ANASTROZOLE
  11. FULVESTRANT [Concomitant]
     Active Substance: FULVESTRANT

REACTIONS (6)
  - Metastases to central nervous system [Unknown]
  - Neutropenia [Unknown]
  - Alopecia [Unknown]
  - Dermatitis acneiform [Unknown]
  - Nail dystrophy [Unknown]
  - Thrombocytopenia [Unknown]

NARRATIVE: CASE EVENT DATE: 20211001
